FAERS Safety Report 6846036-2 (Version None)
Quarter: 2010Q3

REPORT INFORMATION
  Report Type: 
  Country: None (occurrence: None)
  Receive Date: 20100715
  Receipt Date: 20070905
  Transmission Date: 20110219
  Serious: Yes (Other)
  Sender: FDA-Public Use
  Company Number: US-PFIZER INC-2007074625

PATIENT
  Sex: Female
  Weight: 86.2 kg

DRUGS (4)
  1. CHANTIX [Suspect]
     Indication: SMOKING CESSATION THERAPY
     Dates: start: 20070625, end: 20070828
  2. CLARINEX [Concomitant]
  3. VITAMIN B COMPLEX CAP [Concomitant]
  4. CENTRUM [Concomitant]

REACTIONS (9)
  - ANXIETY [None]
  - DISTURBANCE IN ATTENTION [None]
  - EXPRESSIVE LANGUAGE DISORDER [None]
  - HEADACHE [None]
  - HYPERHIDROSIS [None]
  - HYPERTENSION [None]
  - INSOMNIA [None]
  - NAUSEA [None]
  - PALPITATIONS [None]
